FAERS Safety Report 5280444-9 (Version None)
Quarter: 2007Q1

REPORT INFORMATION
  Report Type: 
  Country: None (occurrence: None)
  Receive Date: 20070329
  Receipt Date: 20070326
  Transmission Date: 20070707
  Serious: Yes (Death, Other)
  Sender: FDA-Public Use
  Company Number: JP-AVENTIS-200710785JP

PATIENT
  Age: 75 Year
  Sex: Female
  Weight: 50 kg

DRUGS (13)
  1. ARAVA [Suspect]
     Indication: RHEUMATOID ARTHRITIS
     Route: 048
     Dates: start: 20031210, end: 20040612
  2. PREDONINE                          /00016201/ [Concomitant]
     Indication: RHEUMATOID ARTHRITIS
     Route: 048
     Dates: start: 19990127
  3. NAIXAN                             /00256201/ [Concomitant]
     Indication: RHEUMATOID ARTHRITIS
     Dosage: DOSE: 2 TABLETS
     Route: 048
     Dates: start: 19990127
  4. SELBEX [Concomitant]
     Dosage: DOSE: 2 PACKAGES
     Route: 048
     Dates: start: 19990127
  5. RHEUMATREX                         /00113801/ [Concomitant]
     Indication: RHEUMATOID ARTHRITIS
     Dosage: DOSE: 2 CAPSELS
     Route: 048
     Dates: start: 20020515, end: 20031210
  6. RIMATIL [Concomitant]
     Indication: RHEUMATOID ARTHRITIS
     Dosage: DOSE: 1 TABLET
     Route: 048
     Dates: start: 19990127, end: 20021225
  7. ISOTONIC SODIUM CHLORIDE SOLUTION [Concomitant]
     Indication: RHEUMATOID ARTHRITIS
     Dates: start: 20010627, end: 20030507
  8. ISOTONIC SODIUM CHLORIDE SOLUTION [Concomitant]
     Dates: start: 20030604, end: 20040721
  9. DECADRON [Concomitant]
     Indication: RHEUMATOID ARTHRITIS
     Dates: start: 20010627, end: 20030507
  10. DECADRON [Concomitant]
     Dates: start: 20030604, end: 20040721
  11. PALUX [Concomitant]
     Indication: RHEUMATOID ARTHRITIS
     Dates: start: 20010627, end: 20030507
  12. AMLODIN [Concomitant]
     Dosage: DOSE: 0.5 TABLET
     Route: 048
     Dates: start: 20031224, end: 20040804
  13. NEUROTROPIN                        /00398601/ [Concomitant]
     Indication: RHEUMATOID ARTHRITIS
     Dates: start: 20030604, end: 20040721

REACTIONS (4)
  - HYPERTENSION [None]
  - SEPSIS [None]
  - STOMATITIS [None]
  - UTERINE CANCER [None]
